FAERS Safety Report 21702031 (Version 1)
Quarter: 2022Q4

REPORT INFORMATION
  Report Type: Spontaneous
  Country: US (occurrence: US)
  Receive Date: 20221208
  Receipt Date: 20221208
  Transmission Date: 20230113
  Serious: No
  Sender: FDA-Public Use
  Company Number: US-Calliditas-2022CAL00575

PATIENT
  Age: 46 Year
  Sex: Male

DRUGS (4)
  1. TARPEYO [Suspect]
     Active Substance: BUDESONIDE
     Indication: IgA nephropathy
     Dosage: 16 MG ( 4MG CAPSULES) DAILY
     Route: 048
     Dates: start: 20220512
  2. POTASSIUM [Concomitant]
     Active Substance: POTASSIUM
  3. CHLORTHALIDONE [Concomitant]
     Active Substance: CHLORTHALIDONE
  4. CARVEDILOL [Concomitant]
     Active Substance: CARVEDILOL
     Dosage: INCREASED TO 12.5 MG TWICE DAILY

REACTIONS (3)
  - Protein total increased [Recovered/Resolved]
  - Peripheral swelling [Unknown]
  - Peripheral swelling [Unknown]
